FAERS Safety Report 10397425 (Version 3)
Quarter: 2014Q3

REPORT INFORMATION
  Report Type: Report from Study
  Country: CA (occurrence: CA)
  Receive Date: 20140820
  Receipt Date: 20140929
  Transmission Date: 20150326
  Serious: Yes (Hospitalization, Other)
  Sender: FDA-Public Use
  Company Number: CA-ABBVIE-14K-028-1273199-00

PATIENT
  Age: 76 Year
  Sex: Female
  Weight: 53 kg

DRUGS (6)
  1. UNKNOWN STEROID TREATMENT [Concomitant]
     Indication: PRODUCT USED FOR UNKNOWN INDICATION
  2. HUMIRA [Suspect]
     Active Substance: ADALIMUMAB
     Indication: RHEUMATOID ARTHRITIS
     Route: 058
     Dates: start: 2014, end: 2014
  3. SULFASALAZINE. [Concomitant]
     Active Substance: SULFASALAZINE
     Indication: RHEUMATOID ARTHRITIS
     Route: 048
     Dates: start: 20120524, end: 20121204
  4. METHOTREXATE [Concomitant]
     Active Substance: METHOTREXATE
     Indication: RHEUMATOID ARTHRITIS
     Route: 048
     Dates: start: 20111112, end: 20121204
  5. HUMIRA [Suspect]
     Active Substance: ADALIMUMAB
     Indication: RHEUMATOID ARTHRITIS
     Route: 058
     Dates: start: 20130430, end: 2014
  6. ARAVA [Concomitant]
     Active Substance: LEFLUNOMIDE
     Indication: RHEUMATOID ARTHRITIS
     Route: 048
     Dates: start: 20131110, end: 20140904

REACTIONS (23)
  - Disorientation [Unknown]
  - Intestinal mucosal hypertrophy [Unknown]
  - Bronchial disorder [Unknown]
  - Parotid abscess [Unknown]
  - Deep vein thrombosis [Unknown]
  - Immunodeficiency [Unknown]
  - Tooth extraction [Unknown]
  - Drug ineffective [Not Recovered/Not Resolved]
  - Urinary tract infection [Recovered/Resolved]
  - Sialoadenitis [Recovering/Resolving]
  - Pulmonary mass [Unknown]
  - Thyroid neoplasm [Unknown]
  - Pleural effusion [Unknown]
  - Abdominal mass [Unknown]
  - Aortic disorder [Unknown]
  - Pulmonary tuberculosis [Unknown]
  - Muscle disorder [Unknown]
  - Diarrhoea [Recovered/Resolved]
  - Pericardial effusion [Unknown]
  - Enteritis [Unknown]
  - Hypermetabolism [Unknown]
  - Spinal compression fracture [Unknown]
  - Enteritis infectious [Unknown]

NARRATIVE: CASE EVENT DATE: 201407
